FAERS Safety Report 10225946 (Version 1)
Quarter: 2014Q2

REPORT INFORMATION
  Report Type: Spontaneous
  Country: IT (occurrence: IT)
  Receive Date: 20140609
  Receipt Date: 20140609
  Transmission Date: 20141212
  Serious: Yes (Hospitalization)
  Sender: FDA-Public Use
  Company Number: IT-ACTAVIS-2013-25290

PATIENT
  Age: 40 Year
  Sex: Female
  Weight: 50 kg

DRUGS (4)
  1. SEROQUEL [Suspect]
     Indication: INTENTIONAL SELF-INJURY
     Route: 065
     Dates: start: 20130715, end: 20130715
  2. VENLAFAXINE (UNKNOWN) [Suspect]
     Indication: INTENTIONAL SELF-INJURY
     Route: 065
     Dates: start: 20130715, end: 20130715
  3. ALPRAZOLAM (UNKNOWN) [Suspect]
     Indication: INTENTIONAL SELF-INJURY
     Route: 065
     Dates: start: 20130715, end: 20130715
  4. DEPAKIN CHRONO [Concomitant]
     Indication: EPILEPSY

REACTIONS (2)
  - Drug abuse [Recovered/Resolved]
  - Sopor [Recovered/Resolved]
